FAERS Safety Report 14172055 (Version 1)
Quarter: 2017Q4

REPORT INFORMATION
  Report Type: Spontaneous
  Country: GB (occurrence: GB)
  Receive Date: 20171108
  Receipt Date: 20171108
  Transmission Date: 20180321
  Serious: Yes (Other)
  Sender: FDA-Public Use
  Company Number: GB-009507513-1711GBR001086

PATIENT
  Age: 64 Year
  Sex: Female
  Weight: 70 kg

DRUGS (14)
  1. UBIDECARENONE [Concomitant]
     Active Substance: UBIDECARENONE
     Dosage: 100 MG, UNK
  2. AMLODIPINE [Concomitant]
     Active Substance: AMLODIPINE BESYLATE
  3. AMLODIPINE [Concomitant]
     Active Substance: AMLODIPINE BESYLATE
  4. CYANOCOBALAMIN. [Concomitant]
     Active Substance: CYANOCOBALAMIN
  5. PRUCALOPRIDE [Concomitant]
     Active Substance: PRUCALOPRIDE
  6. CALCICHEW D3 [Concomitant]
     Active Substance: CALCIUM\CHOLECALCIFEROL
  7. VITAMIN B (UNSPECIFIED) [Concomitant]
     Active Substance: VITAMIN B
     Dosage: STATGUARD
  8. VITAMIN E [Concomitant]
     Active Substance: .ALPHA.-TOCOPHEROL
     Dosage: 134 MG, UNK, STATGUARD
  9. ZINC (UNSPECIFIED) [Concomitant]
     Active Substance: ZINC
     Dosage: 14 MG, UNK,STATGUARD
  10. MIRTAZAPINE. [Suspect]
     Active Substance: MIRTAZAPINE
     Indication: INSOMNIA
     Dosage: 15 MG, UNK
     Route: 048
     Dates: start: 20170928, end: 20171018
  11. NUTRITIONAL SUPPLEMENTS [Concomitant]
     Active Substance: DIETARY SUPPLEMENT
  12. LEVOTHYROXINE SODIUM. [Concomitant]
     Active Substance: LEVOTHYROXINE SODIUM
  13. AMLODIPINE [Concomitant]
     Active Substance: AMLODIPINE BESYLATE
  14. ROSUVASTATIN. [Concomitant]
     Active Substance: ROSUVASTATIN

REACTIONS (12)
  - Snoring [Unknown]
  - Dizziness [Unknown]
  - Back pain [Unknown]
  - Tremor [Unknown]
  - Arthralgia [Unknown]
  - Sleep apnoea syndrome [Recovered/Resolved]
  - Depression [Unknown]
  - Fatigue [Unknown]
  - Increased appetite [Unknown]
  - Nausea [Unknown]
  - Dry mouth [Unknown]
  - Crying [Unknown]

NARRATIVE: CASE EVENT DATE: 20171016
